FAERS Safety Report 16136059 (Version 1)
Quarter: 2019Q1

REPORT INFORMATION
  Report Type: Report from Study
  Country: GR (occurrence: GR)
  Receive Date: 20190329
  Receipt Date: 20190329
  Transmission Date: 20190418
  Serious: Yes (Death)
  Sender: FDA-Public Use
  Company Number: PHHY2019GR070486

PATIENT
  Age: 43 Year
  Sex: Male

DRUGS (1)
  1. SANDOSTATIN LAR DEPOT [Suspect]
     Active Substance: OCTREOTIDE ACETATE
     Indication: ENDOCRINE NEOPLASM
     Dosage: UNK
     Route: 065
     Dates: start: 20180620

REACTIONS (1)
  - Death [Fatal]

NARRATIVE: CASE EVENT DATE: 20190317
